FAERS Safety Report 7428452-3 (Version None)
Quarter: 2011Q2

REPORT INFORMATION
  Report Type: 
  Country: None (occurrence: None)
  Receive Date: 20110421
  Receipt Date: 20110407
  Transmission Date: 20111010
  Serious: Yes (Other)
  Sender: FDA-Public Use
  Company Number: PHHY2011TR29498

PATIENT
  Sex: Female
  Weight: 57 kg

DRUGS (5)
  1. IRBESARTAN + HYDROCHLOROTHIAZIDE [Concomitant]
  2. BENEXOL [Concomitant]
     Dosage: UNK
  3. PARACETAMOL [Concomitant]
     Dosage: UNK
  4. LYRICA [Concomitant]
     Dosage: UNK
  5. ACLASTA [Suspect]
     Indication: OSTEOPOROSIS
     Dosage: 5 MG
     Route: 042
     Dates: start: 20110401

REACTIONS (4)
  - BACK PAIN [None]
  - RED BLOOD CELL SEDIMENTATION RATE INCREASED [None]
  - ANAEMIA [None]
  - HAEMOGLOBIN DECREASED [None]
